FAERS Safety Report 8881958 (Version 1)
Quarter: 2012Q4

REPORT INFORMATION
  Report Type: 
  Country: NL (occurrence: NL)
  Receive Date: 20121102
  Receipt Date: 20121102
  Transmission Date: 20130627
  Serious: Yes (Hospitalization)
  Sender: FDA-Public Use
  Company Number: NL-SANOFI-AVENTIS-2012SA077699

PATIENT
  Age: 54 Year
  Sex: Female
  Weight: 69 kg

DRUGS (8)
  1. OXALIPLATIN [Suspect]
     Indication: COLON CARCINOMA
     Dosage: infusion
     Route: 042
     Dates: start: 20120723
  2. XELODA [Suspect]
     Indication: COLON CARCINOMA
     Dosage: 2 dd 1800 mg 14 days, followed by 1 week without
     Route: 048
     Dates: start: 20120723, end: 20120822
  3. CONCERTA [Concomitant]
     Dosage: strength: 18 mg
     Route: 048
  4. TRAMADOL [Concomitant]
     Dosage: strength: 50 mg
     Route: 048
  5. PANTOPRAZOLE [Concomitant]
     Dosage: strength: 40 mg
     Route: 048
  6. PRIMPERAN [Concomitant]
     Dosage: strength: 10 mg
dose: 3 dd 1
     Route: 048
  7. PARACETAMOL [Concomitant]
     Dosage: strength: 1000 mg
     Route: 048
  8. MOVICOLON [Concomitant]
     Dosage: sachet
     Route: 048

REACTIONS (3)
  - Venoocclusive disease [Recovering/Resolving]
  - Ascites [Recovering/Resolving]
  - Abdominal pain [Recovering/Resolving]
